FAERS Safety Report 5159413-5 (Version None)
Quarter: 2006Q4

REPORT INFORMATION
  Report Type: 
  Country: None (occurrence: None)
  Receive Date: 20061122
  Receipt Date: 20061122
  Transmission Date: 20070319
  Serious: Yes (Hospitalization)
  Sender: FDA-Public Use
  Company Number: None

PATIENT
  Sex: Male
  Weight: 85.4 kg

DRUGS (1)
  1. TIGECYCLINE 50 MG WYETH [Suspect]
     Indication: STAPHYLOCOCCAL BACTERAEMIA
     Dosage: 50 MG Q12H IV
     Route: 042

REACTIONS (1)
  - PANCREATITIS ACUTE [None]
